FAERS Safety Report 6818298-9 (Version None)
Quarter: 2010Q3

REPORT INFORMATION
  Report Type: 
  Country: None (occurrence: None)
  Receive Date: 20100706
  Receipt Date: 20100621
  Transmission Date: 20110219
  Serious: Yes (Other)
  Sender: FDA-Public Use
  Company Number: US-ELI_LILLY_AND_COMPANY-US201006005808

PATIENT
  Sex: Female

DRUGS (3)
  1. CYMBALTA [Suspect]
  2. LYRICA [Concomitant]
     Indication: NEUROPATHY PERIPHERAL
     Dosage: 200 MG, 3/D
     Route: 065
  3. GABAPENTIN [Concomitant]

REACTIONS (1)
  - LOSS OF CONSCIOUSNESS [None]
